FAERS Safety Report 13305201 (Version 2)
Quarter: 2017Q2

REPORT INFORMATION
  Report Type: Report from Study
  Country: US (occurrence: US)
  Receive Date: 20170308
  Receipt Date: 20170509
  Transmission Date: 20170830
  Serious: Yes (Other)
  Sender: FDA-Public Use
  Company Number: US-TEVA-746474USA

PATIENT
  Age: 28 Year
  Sex: Female

DRUGS (1)
  1. CLARAVIS [Suspect]
     Active Substance: ISOTRETINOIN
     Dosage: 60 MILLIGRAM DAILY;
     Route: 065
     Dates: start: 20160930, end: 20170228

REACTIONS (1)
  - Unintended pregnancy [Unknown]

NARRATIVE: CASE EVENT DATE: 20170124
